FAERS Safety Report 16693213 (Version 3)
Quarter: 2024Q1

REPORT INFORMATION
  Report Type: Report from Study
  Country: BG (occurrence: BG)
  Receive Date: 20190812
  Receipt Date: 20240201
  Transmission Date: 20240410
  Serious: Yes (Hospitalization)
  Sender: FDA-Public Use
  Company Number: BG-ROCHE-2272734

PATIENT
  Age: 60 Year
  Sex: Female
  Weight: 72 kg

DRUGS (27)
  1. ZOLEDRONIC ACID [Suspect]
     Active Substance: ZOLEDRONIC ACID
     Indication: HER2 positive breast cancer
     Dosage: 4 MILLIGRAM (ON 28/DEC/2018, RECEIVED MOST RECENT DOSE ZOLEDRONIC ACID)
     Route: 042
     Dates: start: 20181002, end: 20181228
  2. ZOLEDRONIC ACID [Suspect]
     Active Substance: ZOLEDRONIC ACID
     Dosage: 4 MILLIGRAM, MONTHLY
     Route: 042
     Dates: start: 20190528, end: 20200207
  3. HERCEPTIN [Suspect]
     Active Substance: TRASTUZUMAB
     Indication: HER2 positive breast cancer
     Dosage: MOST RECENT DOSE PRIOR TO THE EVENT ON 14/NOV/2018
     Route: 042
     Dates: start: 20181024, end: 20181024
  4. HERCEPTIN [Suspect]
     Active Substance: TRASTUZUMAB
     Dosage: 6 MILLIGRAM/KILOGRAM, Q3W
     Route: 042
     Dates: start: 20181114, end: 20200205
  5. PERJETA [Suspect]
     Active Substance: PERTUZUMAB
     Indication: HER2 positive breast cancer
     Dosage: MOST RECENT DOSE PRIOR TO THE EVENT ON 14/NOV/2018
     Route: 042
     Dates: start: 20181024, end: 20181114
  6. PERJETA [Suspect]
     Active Substance: PERTUZUMAB
     Dosage: 420 MILLIGRAM, Q3W
     Route: 042
     Dates: start: 20181114, end: 20200205
  7. TAXOTERE [Suspect]
     Active Substance: DOCETAXEL
     Indication: HER2 positive breast cancer
     Dosage: 75 MILLIGRAM/SQ. METER, Q3W ON 19/JAN/2019, RECEIVED MOST RECENT DOSE OF DOCETAXEL
     Route: 042
     Dates: start: 20181024
  8. AMLODIPINE [Concomitant]
     Active Substance: AMLODIPINE BESYLATE
     Dosage: 5 MILLIGRAM, QD
     Route: 065
     Dates: end: 202006
  9. RAMIPRIL [Concomitant]
     Active Substance: RAMIPRIL
     Dosage: 10 MILLIGRAM, ONGOING = CHECKED
     Route: 065
     Dates: end: 202006
  10. METOPROLOL [Concomitant]
     Active Substance: METOPROLOL
     Dosage: 50 MILLIGRAM, QD
     Route: 065
     Dates: end: 202006
  11. DEXAMETHASONE [Concomitant]
     Active Substance: DEXAMETHASONE
     Dosage: 16 MILLIGRAM
     Route: 065
     Dates: start: 20181114, end: 20181114
  12. DEXAMETHASONE [Concomitant]
     Active Substance: DEXAMETHASONE
     Dosage: 16 MILLIGRAM
     Route: 065
     Dates: start: 20181024, end: 20181024
  13. DEXAMETHASONE [Concomitant]
     Active Substance: DEXAMETHASONE
     Dosage: 8 MILLIGRAM
     Route: 065
     Dates: start: 20181023, end: 20181023
  14. DEXAMETHASONE [Concomitant]
     Active Substance: DEXAMETHASONE
     Dosage: 8 MILLIGRAM
     Route: 065
     Dates: start: 20181205, end: 20181205
  15. DEXAMETHASONE [Concomitant]
     Active Substance: DEXAMETHASONE
     Dosage: 8 MILLIGRAM
     Route: 065
     Dates: start: 20181113, end: 20181113
  16. DEXAMETHASONE [Concomitant]
     Active Substance: DEXAMETHASONE
     Dosage: 16 MILLIGRAM
     Route: 065
     Dates: start: 20181206, end: 20181206
  17. LEVOTHYROXINE SODIUM [Concomitant]
     Active Substance: LEVOTHYROXINE SODIUM
     Dosage: 75 MICROGRAM, ONGOING = CHECKED
     Route: 065
     Dates: end: 202006
  18. FAMOTIDINE [Concomitant]
     Active Substance: FAMOTIDINE
     Dosage: 20 MILLIGRAM, QD
     Route: 065
     Dates: start: 20181114, end: 20181114
  19. FAMOTIDINE [Concomitant]
     Active Substance: FAMOTIDINE
     Dosage: 20 MILLIGRAM, QD
     Route: 065
     Dates: start: 20181206, end: 20181206
  20. FAMOTIDINE [Concomitant]
     Active Substance: FAMOTIDINE
     Dosage: 20 MILLIGRAM, QD
     Route: 065
     Dates: start: 20181024, end: 20181024
  21. BETAHISTINE [Concomitant]
     Active Substance: BETAHISTINE
     Dosage: 24 MILLIGRAM, BID
     Route: 065
     Dates: start: 20200110, end: 20200120
  22. Ademetionin [Concomitant]
     Indication: Aspartate aminotransferase increased
     Dosage: 500 MILLIGRAM, BID
     Route: 065
     Dates: start: 20181015, end: 20181113
  23. Ademetionin [Concomitant]
     Indication: Alanine aminotransferase increased
  24. CITICOLINE [Concomitant]
     Active Substance: CITICOLINE
     Dosage: 250 MILLIGRAM, QD
     Route: 065
     Dates: start: 20200110, end: 20200120
  25. ONDANSETRON [Concomitant]
     Active Substance: ONDANSETRON
     Dosage: 8 MILLIGRAM, QD
     Route: 065
     Dates: start: 20181024, end: 20181024
  26. ONDANSETRON [Concomitant]
     Active Substance: ONDANSETRON
     Dosage: 20 MILLIGRAM, QD
     Route: 065
     Dates: start: 20181206, end: 20181206
  27. ONDANSETRON [Concomitant]
     Active Substance: ONDANSETRON
     Dosage: 4 MILLIGRAM, QD
     Route: 065
     Dates: start: 20181114, end: 20181114

REACTIONS (1)
  - Apical granuloma [Recovered/Resolved]

NARRATIVE: CASE EVENT DATE: 20190208
